FAERS Safety Report 8296246-5 (Version None)
Quarter: 2012Q2

REPORT INFORMATION
  Report Type: 
  Country: None (occurrence: None)
  Receive Date: 20120418
  Receipt Date: 20120411
  Transmission Date: 20120825
  Serious: Yes (Hospitalization)
  Sender: FDA-Public Use
  Company Number: CHPA2012US006171

PATIENT
  Age: 56 Year
  Sex: Female

DRUGS (2)
  1. DRUG THERAPY NOS [Concomitant]
  2. VOLTAREN [Suspect]
     Indication: NEUROPATHY PERIPHERAL
     Dosage: SOME ON END OF INDEX FINGER, TID
     Route: 061
     Dates: start: 20090101

REACTIONS (4)
  - STAPHYLOCOCCAL INFECTION [None]
  - OFF LABEL USE [None]
  - WRONG TECHNIQUE IN DRUG USAGE PROCESS [None]
  - THERAPEUTIC RESPONSE UNEXPECTED [None]
